FAERS Safety Report 14104069 (Version 1)
Quarter: 2017Q4

REPORT INFORMATION
  Report Type: Other
  Country: US (occurrence: US)
  Receive Date: 20171018
  Receipt Date: 20171018
  Transmission Date: 20180321
  Serious: Yes (Other)
  Sender: FDA-Public Use
  Company Number: US-THE PROACTIV LLC-2030601

PATIENT
  Age: 18 Year
  Sex: Female

DRUGS (4)
  1. PROACTIV SOLUTION OIL FREE MOISTURE SPF 15 MOISTURIZER [Suspect]
     Active Substance: OCTINOXATE\ZINC OXIDE
     Route: 061
     Dates: start: 20170924, end: 20170924
  2. PROACTIV RENEWING CLEANSER [Suspect]
     Active Substance: BENZOYL PEROXIDE
     Indication: ACNE
     Route: 061
     Dates: start: 20170924, end: 20170924
  3. PROACTIV REPAIRING TREATMENT [Suspect]
     Active Substance: BENZOYL PEROXIDE
     Route: 061
     Dates: start: 20170924, end: 20170924
  4. PROACTIV SOLUTION ADVANCED DAILY OIL CONTROL [Suspect]
     Active Substance: SALICYLIC ACID
     Route: 061
     Dates: start: 20170924, end: 20170924

REACTIONS (6)
  - Skin burning sensation [None]
  - Rash [Recovering/Resolving]
  - Dry skin [None]
  - Throat tightness [Recovering/Resolving]
  - Swelling face [None]
  - Oropharyngeal pain [None]

NARRATIVE: CASE EVENT DATE: 20170925
